FAERS Safety Report 8275452-X (Version None)
Quarter: 2012Q2

REPORT INFORMATION
  Report Type: 
  Country: None (occurrence: None)
  Receive Date: 20120411
  Receipt Date: 20120406
  Transmission Date: 20120825
  Serious: No
  Sender: FDA-Public Use
  Company Number: US-BAXTER-2012BAX002501

PATIENT
  Sex: Female

DRUGS (3)
  1. CYTOXAN [Suspect]
     Indication: BREAST CANCER
     Dates: start: 20110520
  2. DOXORUBICIN HCL [Suspect]
     Indication: BREAST CANCER
  3. DOCETAXEL [Suspect]
     Indication: BREAST CANCER

REACTIONS (1)
  - ALOPECIA [None]
